FAERS Safety Report 8958675 (Version 1)
Quarter: 2012Q4

REPORT INFORMATION
  Report Type: 
  Country: FR (occurrence: FR)
  Receive Date: 20121212
  Receipt Date: 20121212
  Transmission Date: 20130627
  Serious: Yes (Other)
  Sender: FDA-Public Use
  Company Number: FR-TEVA-374047ISR

PATIENT
  Sex: Male

DRUGS (6)
  1. VINCRISTINE [Suspect]
     Indication: BURKITT^S LYMPHOMA STAGE IV
     Route: 065
  2. DOXORUBICIN [Suspect]
     Indication: BURKITT^S LYMPHOMA STAGE IV
     Route: 065
  3. METHOTREXATE [Suspect]
     Indication: BURKITT^S LYMPHOMA STAGE IV
     Route: 065
  4. ETOPOSIDE [Suspect]
     Indication: BURKITT^S LYMPHOMA STAGE IV
     Route: 065
  5. CYCLOPHOSPHAMIDE [Suspect]
     Indication: BURKITT^S LYMPHOMA STAGE IV
     Route: 065
  6. CYTARABINE [Suspect]
     Indication: BURKITT^S LYMPHOMA STAGE IV
     Route: 065

REACTIONS (3)
  - Neutropenia [Unknown]
  - Escherichia sepsis [Unknown]
  - Mucosal inflammation [Unknown]
